FAERS Safety Report 4444027-2 (Version None)
Quarter: 2004Q3

REPORT INFORMATION
  Report Type: 
  Country: None (occurrence: None)
  Receive Date: 20040729
  Receipt Date: 20040518
  Transmission Date: 20050211
  Serious: Yes (Other)
  Sender: FDA-Public Use
  Company Number: US-JNJFOC-20031102314

PATIENT
  Age: 8 Year
  Sex: Male

DRUGS (2)
  1. RISPERDAL [Suspect]
     Indication: ATTENTION DEFICIT/HYPERACTIVITY DISORDER
     Dosage: 0.5 MG, 1 IN 1 DAY, ORAL
     Route: 048
     Dates: start: 20030201
  2. CONCERTA [Concomitant]

REACTIONS (4)
  - ABNORMAL BEHAVIOUR [None]
  - CHEST PAIN [None]
  - DIZZINESS [None]
  - TARDIVE DYSKINESIA [None]
